FAERS Safety Report 21331533 (Version 1)
Quarter: 2022Q3

REPORT INFORMATION
  Report Type: Spontaneous
  Country: US (occurrence: US)
  Receive Date: 20220914
  Receipt Date: 20220914
  Transmission Date: 20221027
  Serious: Yes (Other)
  Sender: FDA-Public Use
  Company Number: US-LUPIN PHARMACEUTICALS INC.-2022-11041

PATIENT

DRUGS (1)
  1. HYDROCORTISONE [Suspect]
     Active Substance: HYDROCORTISONE
     Indication: Hypotension
     Dosage: 710 MILLIGRAM/KILOGRAM
     Route: 065

REACTIONS (3)
  - Renal impairment [Unknown]
  - Prescribed overdose [Unknown]
  - Incorrect product administration duration [Unknown]
